FAERS Safety Report 8074631-4 (Version None)
Quarter: 2012Q1

REPORT INFORMATION
  Report Type: 
  Country: None (occurrence: None)
  Receive Date: 20120120
  Receipt Date: 20120116
  Transmission Date: 20120608
  Serious: Yes (Other)
  Sender: FDA-Public Use
  Company Number: A0961570A

PATIENT
  Age: 67 Year
  Sex: Male

DRUGS (1)
  1. CALCIUM CARBONATE [Suspect]
     Indication: DYSPEPSIA
     Dosage: UNK /UNK / ORAL
     Route: 048

REACTIONS (3)
  - GROIN PAIN [None]
  - NEPHROLITHIASIS [None]
  - ABDOMINAL PAIN UPPER [None]
